FAERS Safety Report 20622778 (Version 2)
Quarter: 2022Q2

REPORT INFORMATION
  Report Type: Report from Study
  Country: US (occurrence: US)
  Receive Date: 20220322
  Receipt Date: 20220415
  Transmission Date: 20220721
  Serious: Yes (Hospitalization, Other)
  Sender: FDA-Public Use
  Company Number: US-HBP-2022US025117

PATIENT
  Sex: Male

DRUGS (4)
  1. VALCHLOR [Suspect]
     Active Substance: MECHLORETHAMINE
     Indication: Cutaneous T-cell lymphoma
     Dosage: THIN FILM, EVERY NIGHT
     Route: 061
     Dates: end: 20220302
  2. VALCHLOR [Suspect]
     Active Substance: MECHLORETHAMINE
     Dosage: UNK, QD
     Route: 061
     Dates: start: 20220304, end: 20220306
  3. VALCHLOR [Suspect]
     Active Substance: MECHLORETHAMINE
     Dosage: UNK, QD
     Route: 061
     Dates: end: 20220328
  4. VALCHLOR [Suspect]
     Active Substance: MECHLORETHAMINE
     Dosage: UNK, QD
     Route: 061
     Dates: start: 20220404

REACTIONS (8)
  - Post procedural infection [Recovered/Resolved]
  - Knee operation [Unknown]
  - Platelet count decreased [Recovered/Resolved]
  - Post procedural erythema [Recovered/Resolved]
  - Pulmonary oedema [Unknown]
  - Fluid retention [Unknown]
  - Cardiac failure congestive [Unknown]
  - Intentional dose omission [Recovered/Resolved]

NARRATIVE: CASE EVENT DATE: 20220101
